FAERS Safety Report 7199247-3 (Version None)
Quarter: 2010Q4

REPORT INFORMATION
  Report Type: 
  Country: None (occurrence: None)
  Receive Date: 20101223
  Receipt Date: 20101223
  Transmission Date: 20110411
  Serious: Yes (Hospitalization)
  Sender: FDA-Public Use
  Company Number: None

PATIENT
  Age: 75 Year
  Sex: Female
  Weight: 88.6 kg

DRUGS (12)
  1. SIMVASTATIN [Suspect]
     Indication: DYSLIPIDAEMIA
     Dosage: 80 MG DAILY 047
     Route: 048
     Dates: start: 20101022, end: 20101114
  2. ACETAMINOPHEN [Concomitant]
  3. ALLOPURINOL [Concomitant]
  4. ASA [Concomitant]
  5. GABAPENTIN [Concomitant]
  6. FLUOXETINE [Concomitant]
  7. LEVOTHYROXINE [Concomitant]
  8. LOSARTEN [Concomitant]
  9. METOPROLOL TARTRATE [Concomitant]
  10. NITROGLYCERIN [Concomitant]
  11. PLAVIX [Concomitant]
  12. CEFUROXIME [Concomitant]

REACTIONS (2)
  - ASTHENIA [None]
  - MUSCULAR WEAKNESS [None]
